FAERS Safety Report 12365644 (Version 38)
Quarter: 2020Q4

REPORT INFORMATION
  Report Type: Spontaneous
  Country: CA (occurrence: CA)
  Receive Date: 20160513
  Receipt Date: 20201207
  Transmission Date: 20210113
  Serious: Yes (Hospitalization, Other)
  Sender: FDA-Public Use
  Company Number: CA-ROCHE-1756124

PATIENT
  Age: 67 Year
  Sex: Female

DRUGS (37)
  1. XOLAIR [Suspect]
     Active Substance: OMALIZUMAB
     Route: 058
  2. XOLAIR [Suspect]
     Active Substance: OMALIZUMAB
     Route: 058
     Dates: start: 20140320
  3. XOLAIR [Suspect]
     Active Substance: OMALIZUMAB
     Route: 058
     Dates: start: 20160311
  4. XOLAIR [Suspect]
     Active Substance: OMALIZUMAB
     Route: 058
     Dates: start: 20180713
  5. TRIAZIDE [HYDROCHLOROTHIAZIDE;TRIAMTERENE] [Concomitant]
     Indication: HYPERTENSION
     Dosage: 50 MG, QD
     Route: 065
     Dates: start: 2016
  6. CORTISONE [Suspect]
     Active Substance: CORTISONE
     Route: 065
     Dates: start: 20161114
  7. TRIAMTERENE. [Concomitant]
     Active Substance: TRIAMTERENE
     Indication: HYPERTENSION
     Route: 065
  8. PREGABALINA [Concomitant]
     Active Substance: PREGABALIN
  9. XOLAIR [Suspect]
     Active Substance: OMALIZUMAB
     Route: 058
     Dates: start: 20160321
  10. XOLAIR [Suspect]
     Active Substance: OMALIZUMAB
     Route: 058
     Dates: start: 20160511
  11. XOLAIR [Suspect]
     Active Substance: OMALIZUMAB
     Route: 058
     Dates: start: 20161110
  12. XOLAIR [Suspect]
     Active Substance: OMALIZUMAB
     Route: 058
     Dates: start: 20180511
  13. XOLAIR [Suspect]
     Active Substance: OMALIZUMAB
     Route: 058
     Dates: start: 20180705
  14. XOLAIR [Suspect]
     Active Substance: OMALIZUMAB
     Route: 058
     Dates: start: 20180920
  15. XOLAIR [Suspect]
     Active Substance: OMALIZUMAB
     Route: 058
     Dates: start: 20190606
  16. XOLAIR [Suspect]
     Active Substance: OMALIZUMAB
     Route: 058
     Dates: start: 20150130
  17. XOLAIR [Suspect]
     Active Substance: OMALIZUMAB
     Indication: ASTHMA
     Route: 058
     Dates: start: 20080723
  18. XOLAIR [Suspect]
     Active Substance: OMALIZUMAB
     Route: 058
     Dates: start: 20160712
  19. XOLAIR [Suspect]
     Active Substance: OMALIZUMAB
     Route: 058
     Dates: start: 20160809
  20. XOLAIR [Suspect]
     Active Substance: OMALIZUMAB
     Route: 058
     Dates: start: 20161124
  21. XOLAIR [Suspect]
     Active Substance: OMALIZUMAB
     Route: 058
     Dates: start: 20171109
  22. XOLAIR [Suspect]
     Active Substance: OMALIZUMAB
     Route: 058
     Dates: start: 20161208
  23. XOLAIR [Suspect]
     Active Substance: OMALIZUMAB
     Route: 058
     Dates: start: 20170720
  24. XOLAIR [Suspect]
     Active Substance: OMALIZUMAB
     Route: 058
     Dates: start: 20180607
  25. XOLAIR [Suspect]
     Active Substance: OMALIZUMAB
     Route: 058
     Dates: start: 20180713
  26. XOLAIR [Suspect]
     Active Substance: OMALIZUMAB
     Route: 058
     Dates: start: 20181018
  27. CORTISONE [Suspect]
     Active Substance: CORTISONE
     Indication: PNEUMONITIS
     Route: 065
     Dates: start: 20141023
  28. XOLAIR [Suspect]
     Active Substance: OMALIZUMAB
     Route: 058
     Dates: start: 20160831
  29. XOLAIR [Suspect]
     Active Substance: OMALIZUMAB
     Route: 058
     Dates: start: 20181005
  30. CORTISONE [Suspect]
     Active Substance: CORTISONE
     Indication: BACK PAIN
     Route: 008
     Dates: start: 20131128
  31. METHOTREXATE. [Concomitant]
     Active Substance: METHOTREXATE
  32. CORTISONE [Suspect]
     Active Substance: CORTISONE
     Route: 065
  33. XOLAIR [Suspect]
     Active Substance: OMALIZUMAB
     Route: 058
     Dates: start: 20090420
  34. XOLAIR [Suspect]
     Active Substance: OMALIZUMAB
     Route: 058
     Dates: start: 20160726
  35. XOLAIR [Suspect]
     Active Substance: OMALIZUMAB
     Route: 058
     Dates: start: 20160818
  36. CORTISONE [Suspect]
     Active Substance: CORTISONE
     Indication: PNEUMONIA
     Route: 008
     Dates: start: 20140129
  37. VERAPAMIL [Concomitant]
     Active Substance: VERAPAMIL HYDROCHLORIDE
     Indication: HYPERTENSION
     Dosage: 120 MG, QD
     Route: 065
     Dates: start: 2016

REACTIONS (30)
  - Pain [Unknown]
  - Post procedural contusion [Unknown]
  - Respiratory rate increased [Unknown]
  - Illness [Unknown]
  - Urinary tract infection [Unknown]
  - Intraocular pressure increased [Unknown]
  - Arthritis [Not Recovered/Not Resolved]
  - Asthma [Unknown]
  - Hernia [Unknown]
  - Pneumonia [Recovering/Resolving]
  - Dysphagia [Unknown]
  - Vertigo [Unknown]
  - Scratch [Unknown]
  - Contusion [Unknown]
  - Blindness [Unknown]
  - Blood pressure increased [Not Recovered/Not Resolved]
  - Glaucoma [Recovering/Resolving]
  - Intervertebral disc compression [Unknown]
  - Dyspnoea [Unknown]
  - Arthralgia [Not Recovered/Not Resolved]
  - Heart rate increased [Unknown]
  - Pneumonitis [Unknown]
  - Pain in extremity [Unknown]
  - Sepsis [Recovering/Resolving]
  - Tendon rupture [Unknown]
  - Asthenia [Unknown]
  - Hand deformity [Unknown]
  - Nephrolithiasis [Recovering/Resolving]
  - Weight decreased [Unknown]
  - Hypertension [Unknown]

NARRATIVE: CASE EVENT DATE: 20131127
